FAERS Safety Report 4399763-3 (Version None)
Quarter: 2004Q3

REPORT INFORMATION
  Report Type: 
  Country: None (occurrence: None)
  Receive Date: 20040714
  Receipt Date: 20040628
  Transmission Date: 20050211
  Serious: Yes (Other)
  Sender: FDA-Public Use
  Company Number: A-CH2004-06595

PATIENT
  Age: 57 Year
  Sex: Male
  Weight: 95 kg

DRUGS (3)
  1. TRACLEER [Suspect]
     Indication: PULMONARY HYPERTENSION
     Dosage: SEE IMAGE
     Route: 048
     Dates: start: 20040514, end: 20040607
  2. TRACLEER [Suspect]
     Indication: PULMONARY HYPERTENSION
     Dosage: SEE IMAGE
     Route: 048
     Dates: start: 20040608, end: 20040610
  3. ACENOCOUMAROL (ACENOCOUMAROL) [Concomitant]

REACTIONS (7)
  - APHASIA [None]
  - DYSPNOEA [None]
  - HOARSENESS [None]
  - LARYNGEAL OEDEMA [None]
  - LARYNGOSPASM [None]
  - OFF LABEL USE [None]
  - STRIDOR [None]
